FAERS Safety Report 9371073 (Version 3)
Quarter: 2013Q3

REPORT INFORMATION
  Report Type: Spontaneous
  Country: NL (occurrence: NL)
  Receive Date: 20130627
  Receipt Date: 20130709
  Transmission Date: 20140515
  Serious: Yes (Death)
  Sender: FDA-Public Use
  Company Number: NL-B.I. PHARMACEUTICALS,INC./RIDGEFIELD-2013-NL-00459NL

PATIENT
  Age: 80 Year
  Sex: Male

DRUGS (5)
  1. PRADAXA [Suspect]
     Indication: ATRIAL FIBRILLATION
     Dosage: 220 MG
     Route: 048
     Dates: start: 20120820, end: 20130523
  2. AMIODARONE [Concomitant]
     Indication: ATRIAL FIBRILLATION
     Dosage: 100 MG
     Route: 048
     Dates: start: 20130214, end: 20130523
  3. HCTZ [Concomitant]
  4. LIPITOR [Concomitant]
  5. BETA BLOCKER [Concomitant]

REACTIONS (6)
  - Death [Fatal]
  - Neck pain [Unknown]
  - Confusional state [Unknown]
  - Chest pain [Unknown]
  - Feeling cold [Unknown]
  - Tremor [Unknown]
